FAERS Safety Report 9160905 (Version 1)
Quarter: 2013Q1

REPORT INFORMATION
  Report Type: Spontaneous
  Country: US (occurrence: US)
  Receive Date: 20130313
  Receipt Date: 20130313
  Transmission Date: 20140127
  Serious: No
  Sender: FDA-Public Use
  Company Number: US-BAYER-2013-031091

PATIENT
  Sex: Female

DRUGS (1)
  1. BEYAZ [Suspect]
     Indication: MENOPAUSE
     Dosage: 3MG/0.02MG/0.451MG AND 0.451

REACTIONS (2)
  - Back injury [None]
  - Off label use [None]
